FAERS Safety Report 12766853 (Version 6)
Quarter: 2017Q3

REPORT INFORMATION
  Report Type: Spontaneous
  Country: US (occurrence: US)
  Receive Date: 20160921
  Receipt Date: 20170825
  Transmission Date: 20171127
  Serious: Yes (Hospitalization, Other)
  Sender: FDA-Public Use
  Company Number: US-BAYER-2016-182807

PATIENT
  Age: 27 Year
  Sex: Female
  Weight: 68 kg

DRUGS (7)
  1. IBUPROFEN. [Concomitant]
     Active Substance: IBUPROFEN
     Indication: PAIN
     Dosage: UNK
  2. AMOXY [Concomitant]
     Dosage: UNK
  3. HYDROCODONE [HYDROCODONE] [Concomitant]
     Active Substance: HYDROCODONE
     Indication: PAIN
     Dosage: UNK
  4. MIRENA [Suspect]
     Active Substance: LEVONORGESTREL
     Indication: CONTRACEPTION
     Dosage: 20 MCG/24HR, CONT
     Route: 015
     Dates: start: 20121213, end: 20140606
  5. KLONOPIN [Concomitant]
     Active Substance: CLONAZEPAM
  6. CELEXA [Concomitant]
     Active Substance: CITALOPRAM HYDROBROMIDE
  7. XANAX [Concomitant]
     Active Substance: ALPRAZOLAM

REACTIONS (12)
  - Pain [Not Recovered/Not Resolved]
  - Anxiety [None]
  - Scar [None]
  - Abortion spontaneous [None]
  - Drug ineffective [None]
  - Device use issue [None]
  - Infertility female [None]
  - Depression [None]
  - Cervix injury [None]
  - Uterine perforation [Not Recovered/Not Resolved]
  - Pregnancy with contraceptive device [None]
  - Uterine injury [None]

NARRATIVE: CASE EVENT DATE: 201405
